FAERS Safety Report 23166658 (Version 1)
Quarter: 2023Q4

REPORT INFORMATION
  Report Type: Spontaneous
  Country: CN (occurrence: CN)
  Receive Date: 20231109
  Receipt Date: 20231109
  Transmission Date: 20240110
  Serious: Yes (Other)
  Sender: FDA-Public Use
  Company Number: CN-Eisai-EC-2023-151992

PATIENT
  Age: 33 Year
  Sex: Female

DRUGS (4)
  1. RABEPRAZOLE [Suspect]
     Active Substance: RABEPRAZOLE
     Indication: Helicobacter infection
     Route: 048
     Dates: start: 20231021, end: 20231023
  2. BISMUTH SUBCITRATE [Suspect]
     Active Substance: BISMUTH SUBCITRATE
     Indication: Helicobacter infection
     Dosage: 480 MG DAILY
     Route: 048
     Dates: start: 20231021, end: 20231023
  3. AMOXICILLIN [Suspect]
     Active Substance: AMOXICILLIN
     Indication: Helicobacter infection
     Dosage: 2 GM DAILY
     Route: 048
     Dates: start: 20231021, end: 20231023
  4. METRONIDAZOLE [Suspect]
     Active Substance: METRONIDAZOLE
     Indication: Helicobacter infection
     Dosage: 1.2 GM DAILY
     Route: 048
     Dates: start: 20231021, end: 20231023

REACTIONS (2)
  - Dermatitis allergic [Unknown]
  - Drug eruption [Unknown]

NARRATIVE: CASE EVENT DATE: 20231023
